FAERS Safety Report 16807802 (Version 1)
Quarter: 2019Q3

REPORT INFORMATION
  Report Type: Other
  Country: GB (occurrence: GB)
  Receive Date: 20190915
  Receipt Date: 20190915
  Transmission Date: 20191005
  Serious: Yes (Other)
  Sender: FDA-Public Use
  Company Number: GB-DEXPHARM-20190728

PATIENT
  Age: 38 Year
  Sex: Female

DRUGS (7)
  1. DICLOFENAC TOPICAL 0.1% [Suspect]
     Active Substance: DICLOFENAC
     Dosage: FOUR TIMES PER FAY
     Route: 061
  2. CHLORAMPHENICOL [Suspect]
     Active Substance: CHLORAMPHENICOL
     Dosage: EVERY NIGHT
     Route: 061
  3. SODIUM HYALURONATE [Suspect]
     Active Substance: HYALURONATE SODIUM
     Dosage: EVERY TWO HOURS
  4. CYCLOPENTOLATE. [Suspect]
     Active Substance: CYCLOPENTOLATE
     Dosage: THREE TIMES PER DAY
     Route: 061
  5. LEVOFLOXACIN. [Suspect]
     Active Substance: LEVOFLOXACIN
     Dosage: EVERY TWO HOURS
  6. CHLORAMPHENICOL [Suspect]
     Active Substance: CHLORAMPHENICOL
     Dosage: FOUR TIMES PER FAY
     Route: 061
  7. PREDNISOLONE. [Suspect]
     Active Substance: PREDNISOLONE
     Dosage: FOUR TIMES PER DAY

REACTIONS (1)
  - Keratopathy [Recovered/Resolved with Sequelae]
